FAERS Safety Report 5009619-0 (Version None)
Quarter: 2006Q2

REPORT INFORMATION
  Report Type: 
  Country: None (occurrence: None)
  Receive Date: 20060522
  Receipt Date: 20060512
  Transmission Date: 20061013
  Serious: Yes (Other)
  Sender: FDA-Public Use
  Company Number: CIP06000971

PATIENT
  Age: 76 Year
  Sex: Female
  Weight: 70.7 kg

DRUGS (8)
  1. DIDRONEL [Suspect]
     Indication: OSTEOPOROSIS PROPHYLAXIS
     Dosage: 400 MG DAILY FOR 2 WEEKS EVERY 3 MONTHS, ORAL
     Route: 048
     Dates: start: 19980501, end: 20021001
  2. CALCIUM WITH VITAMIN D (CALCIUM PHOSPHATE, CALCIUM SODIUM LACTATE, ERG [Concomitant]
  3. MULTI-VIT (VITAMINS NOS) [Concomitant]
  4. ASPIRIN [Concomitant]
  5. Z-PAK (AZITHROMYCIN) [Concomitant]
  6. CEFZIL [Concomitant]
  7. HYDROCHLOROTHIAZIDE [Concomitant]
  8. LISINOPRIL [Concomitant]

REACTIONS (6)
  - ANTINUCLEAR ANTIBODY POSITIVE [None]
  - BLOOD CARBON MONOXIDE DECREASED [None]
  - CREPITATIONS [None]
  - LUNG NEOPLASM [None]
  - PULMONARY FIBROSIS [None]
  - RAYNAUD'S PHENOMENON [None]
